FAERS Safety Report 25086692 (Version 1)
Quarter: 2025Q1

REPORT INFORMATION
  Report Type: Spontaneous
  Country: GB (occurrence: GB)
  Receive Date: 20250318
  Receipt Date: 20250318
  Transmission Date: 20250409
  Serious: Yes (Other)
  Sender: RANBAXY
  Company Number: GB-SUN PHARMACEUTICAL INDUSTRIES LTD-2025RR-499600

PATIENT
  Age: 63 Year
  Sex: Male
  Weight: 65 kg

DRUGS (1)
  1. ERLOTINIB [Suspect]
     Active Substance: ERLOTINIB
     Indication: Olmsted syndrome
     Dosage: 100 MILLIGRAM, DAILY

REACTIONS (3)
  - Dermatitis acneiform [Recovering/Resolving]
  - Blepharitis [Recovering/Resolving]
  - Conjunctivitis [Recovering/Resolving]
